FAERS Safety Report 15467726 (Version 1)
Quarter: 2018Q4

REPORT INFORMATION
  Report Type: Other
  Country: GB (occurrence: GB)
  Receive Date: 20181005
  Receipt Date: 20181005
  Transmission Date: 20190204
  Serious: Yes (Other)
  Sender: FDA-Public Use
  Company Number: GB-LUPIN PHARMACEUTICALS INC.-2018-06839

PATIENT
  Age: 33 Year
  Sex: Female
  Weight: 79.37 kg

DRUGS (1)
  1. SERTRALINE [Suspect]
     Active Substance: SERTRALINE HYDROCHLORIDE
     Indication: AGORAPHOBIA
     Dosage: 100 MG, UNK
     Route: 065
     Dates: start: 20110406

REACTIONS (3)
  - Gastrooesophageal reflux disease [Recovered/Resolved]
  - Oesophageal discomfort [Recovered/Resolved]
  - Oesophageal pain [Recovered/Resolved]
